FAERS Safety Report 8817462 (Version 1)
Quarter: 2012Q4

REPORT INFORMATION
  Report Type: 
  Country: US (occurrence: US)
  Receive Date: 20121001
  Receipt Date: 20121001
  Transmission Date: 20130627
  Serious: Yes (Other)
  Sender: FDA-Public Use
  Company Number: US-ASTELLAS-2011US007225

PATIENT
  Sex: Female

DRUGS (1)
  1. VESICARE [Suspect]
     Indication: PRODUCT USED FOR UNKNOWN INDICATION
     Dosage: 5 mg, Unknown/D
     Route: 048

REACTIONS (2)
  - Visual field defect [Unknown]
  - Vision blurred [Unknown]
